FAERS Safety Report 25259382 (Version 1)
Quarter: 2025Q2

REPORT INFORMATION
  Report Type: Spontaneous
  Country: US (occurrence: None)
  Receive Date: 20250430
  Receipt Date: 20250430
  Transmission Date: 20250717
  Serious: Yes (Hospitalization, Other)
  Sender: FDA-CTU
  Company Number: None

PATIENT
  Age: 80 Year
  Sex: Female
  Weight: 58.97 kg

DRUGS (7)
  1. MULTAQ [Suspect]
     Active Substance: DRONEDARONE
     Indication: Cardiac disorder
     Dosage: FREQUENCY : TWICE A DAY;?
     Route: 048
     Dates: start: 2022, end: 202412
  2. CARVEDILOL [Concomitant]
     Active Substance: CARVEDILOL
  3. LEVOTHYROXINE [Concomitant]
     Active Substance: LEVOTHYROXINE
  4. ELIQUIS [Concomitant]
     Active Substance: APIXABAN
  5. VITAMIN D NOS [Concomitant]
     Active Substance: CHOLECALCIFEROL\ERGOCALCIFEROL
  6. MAGNESIUM [Concomitant]
     Active Substance: MAGNESIUM
  7. POTASSIUM [Concomitant]
     Active Substance: POTASSIUM

REACTIONS (3)
  - Pneumonia [None]
  - Physical product label issue [None]
  - Quality of life decreased [None]

NARRATIVE: CASE EVENT DATE: 20221001
